FAERS Safety Report 9622414 (Version 1)
Quarter: 2013Q4

REPORT INFORMATION
  Report Type: Spontaneous
  Country: US (occurrence: None)
  Receive Date: 20131010
  Receipt Date: 20131010
  Transmission Date: 20140711
  Serious: Yes (Other)
  Sender: FDA-Public Use
  Company Number: 001606788A

PATIENT
  Age: 55 Year
  Sex: Female

DRUGS (2)
  1. MB ANTIOXIDANT DAY CREME SPF 20 [Suspect]
     Dosage: ONCE DERMAL AM
     Dates: start: 20130919
  2. MEANINGFUL BEAUTY SKIN BRIGHTENING DECOLLETE NECK TREATMENT SPF.15 [Suspect]
     Dosage: ONCE DERMAL PM
     Dates: start: 20130919

REACTIONS (5)
  - Swelling face [None]
  - Eye swelling [None]
  - Pruritus [None]
  - Erythema [None]
  - Blister [None]
